FAERS Safety Report 13515311 (Version 1)
Quarter: 2017Q2

REPORT INFORMATION
  Report Type: Spontaneous
  Country: US (occurrence: US)
  Receive Date: 20170504
  Receipt Date: 20170504
  Transmission Date: 20170830
  Serious: Yes (Other)
  Sender: FDA-Public Use
  Company Number: US-THE MENTHOLATUM COMPANY-2020226

PATIENT

DRUGS (1)
  1. SOFTLIPS CUBE FRESH MINT [Suspect]
     Active Substance: DIMETHICONE\OCTINOXATE\OXYBENZONE
     Route: 061

REACTIONS (1)
  - Application site irritation [Unknown]
